FAERS Safety Report 10192674 (Version 3)
Quarter: 2014Q3

REPORT INFORMATION
  Report Type: Report from Study
  Country: KR (occurrence: KR)
  Receive Date: 20140523
  Receipt Date: 20140701
  Transmission Date: 20150326
  Serious: Yes (Hospitalization)
  Sender: FDA-Public Use
  Company Number: KR-ASTELLAS-2014JP006448

PATIENT
  Age: 69 Year
  Sex: Male

DRUGS (21)
  1. ENZALUTAMIDE [Suspect]
     Active Substance: ENZALUTAMIDE
     Indication: PROSTATE CANCER
     Route: 048
     Dates: start: 20140401, end: 20140616
  2. THIOCTRAN HR [Concomitant]
     Indication: DIABETES MELLITUS
     Route: 048
     Dates: start: 2013
  3. BISACODYL. [Concomitant]
     Active Substance: BISACODYL
     Indication: CONSTIPATION
     Route: 048
     Dates: start: 20140306, end: 20140404
  4. HARNAL [Concomitant]
     Active Substance: TAMSULOSIN HYDROCHLORIDE
     Dosage: 0.2 MG, ONCE DAILY
     Route: 048
     Dates: start: 20140217, end: 20140302
  5. ENZALUTAMIDE [Suspect]
     Active Substance: ENZALUTAMIDE
     Route: 048
     Dates: start: 20140618
  6. OPARA [Concomitant]
     Indication: PROPHYLAXIS
     Route: 048
     Dates: start: 2013
  7. HARNAL [Concomitant]
     Active Substance: TAMSULOSIN HYDROCHLORIDE
     Dosage: 0.2 MG, ONCE DAILY
     Route: 048
     Dates: start: 20140306, end: 20140306
  8. ECAREX [Concomitant]
     Indication: PROPHYLAXIS
     Route: 048
     Dates: start: 2013
  9. OMACOR [Concomitant]
     Active Substance: OMEGA-3-ACID ETHYL ESTERS
     Indication: PROPHYLAXIS
     Route: 048
     Dates: start: 2013
  10. AGIO [Concomitant]
     Indication: CONSTIPATION
     Route: 048
     Dates: start: 20131229, end: 20140215
  11. ULTRACET [Concomitant]
     Active Substance: ACETAMINOPHEN\TRAMADOL HYDROCHLORIDE
     Indication: ANALGESIC THERAPY
     Dosage: 2 UNK, UNK
     Route: 048
     Dates: start: 20140421
  12. TRADJENTA [Concomitant]
     Active Substance: LINAGLIPTIN
     Indication: DIABETES MELLITUS
     Route: 048
     Dates: start: 2013
  13. DUPHALAC [Concomitant]
     Active Substance: LACTULOSE
     Indication: CONSTIPATION
     Route: 048
     Dates: start: 20140306, end: 20140404
  14. FEROBA [Concomitant]
     Dosage: 512 UNK, UNKNOWN FREQ.
     Route: 048
     Dates: start: 20140421
  15. ITOMED [Concomitant]
     Indication: PROPHYLAXIS
     Route: 048
     Dates: start: 20140305, end: 20140404
  16. FLOXIN [Concomitant]
     Active Substance: OFLOXACIN
     Indication: PROPHYLAXIS
     Dosage: UNK UNK, ONCE DAILY
     Route: 061
     Dates: start: 20140511, end: 20140511
  17. AGIO [Concomitant]
     Route: 048
     Dates: start: 20140306, end: 20140404
  18. FEROBA [Concomitant]
     Indication: HAEMATOLOGY TEST ABNORMAL
     Route: 048
     Dates: start: 20140306, end: 20140404
  19. MGO [Concomitant]
     Indication: CONSTIPATION
     Route: 048
     Dates: start: 20140306, end: 20140404
  20. ULTRACET [Concomitant]
     Active Substance: ACETAMINOPHEN\TRAMADOL HYDROCHLORIDE
     Indication: PAIN
     Route: 048
     Dates: start: 20140305, end: 20140313
  21. CELEBREX [Concomitant]
     Active Substance: CELECOXIB
     Indication: ANALGESIC THERAPY
     Route: 048
     Dates: start: 20140609

REACTIONS (2)
  - Urinary tract obstruction [Recovered/Resolved]
  - Haematuria [Recovered/Resolved]

NARRATIVE: CASE EVENT DATE: 20140511
